FAERS Safety Report 9336499 (Version 1)
Quarter: 2013Q2

REPORT INFORMATION
  Report Type: Spontaneous
  Country: US (occurrence: US)
  Receive Date: 20130607
  Receipt Date: 20130607
  Transmission Date: 20140414
  Serious: Yes (Hospitalization, Other)
  Sender: FDA-Public Use
  Company Number: US-ROCHE-678056

PATIENT
  Age: 17 Year
  Sex: Female
  Weight: 49.9 kg

DRUGS (1)
  1. ACCUTANE [Suspect]
     Indication: ACNE
     Route: 048
     Dates: start: 19930205, end: 199309

REACTIONS (10)
  - Colitis ulcerative [Unknown]
  - Proctitis [Unknown]
  - Gastrointestinal injury [Unknown]
  - Inflammatory bowel disease [Unknown]
  - Venous thrombosis [Unknown]
  - Lip dry [Unknown]
  - Dry skin [Unknown]
  - Conjunctivitis [Unknown]
  - Pharyngitis [Unknown]
  - Melanocytic naevus [Unknown]
